FAERS Safety Report 14999147 (Version 1)
Quarter: 2018Q2

REPORT INFORMATION
  Report Type: Spontaneous
  Country: GB (occurrence: GB)
  Receive Date: 20180612
  Receipt Date: 20180612
  Transmission Date: 20180711
  Serious: Yes (Other)
  Sender: FDA-Public Use
  Company Number: GB-TEVA-2018-GB-905599

PATIENT
  Age: 55 Year
  Sex: Male
  Weight: 83 kg

DRUGS (1)
  1. AMOXICILLIN. [Suspect]
     Active Substance: AMOXICILLIN
     Indication: TOOTH ABSCESS
     Dosage: 1500 MILLIGRAM DAILY; FOR 5 DAYS.
     Route: 048
     Dates: start: 20180403, end: 20180408

REACTIONS (2)
  - Back pain [Recovering/Resolving]
  - Renal pain [Recovering/Resolving]

NARRATIVE: CASE EVENT DATE: 20180404
